FAERS Safety Report 22278488 (Version 4)
Quarter: 2023Q2

REPORT INFORMATION
  Report Type: Spontaneous
  Country: US (occurrence: US)
  Receive Date: 20230503
  Receipt Date: 20230627
  Transmission Date: 20230722
  Serious: No
  Sender: FDA-Public Use
  Company Number: US-PFIZER INC-PV202300078771

PATIENT
  Age: 11 Year
  Sex: Male

DRUGS (3)
  1. GENOTROPIN [Suspect]
     Active Substance: SOMATROPIN
     Indication: Growth disorder
     Dosage: 1.8 MG, (1.8MG ALTERNATING WITH 2MG)
     Dates: start: 202209
  2. GENOTROPIN [Suspect]
     Active Substance: SOMATROPIN
     Dosage: 2 MG, (1.8MG ALTERNATING WITH 2MG)
     Dates: start: 202209
  3. ANASTROZOLE [Concomitant]
     Active Substance: ANASTROZOLE
     Indication: Growth disorder
     Dosage: 1 MG

REACTIONS (3)
  - Device mechanical issue [Unknown]
  - Poor quality device used [Unknown]
  - Device use error [Unknown]
